FAERS Safety Report 9402629 (Version 2)
Quarter: 2013Q4

REPORT INFORMATION
  Report Type: Spontaneous
  Country: AU (occurrence: AU)
  Receive Date: 20130716
  Receipt Date: 20131016
  Transmission Date: 20140711
  Serious: Yes (Death, Disabling)
  Sender: FDA-Public Use
  Company Number: AU-CELGENEUS-008-21880-13032062

PATIENT
  Age: 59 Year
  Sex: Male

DRUGS (6)
  1. REVLIMID [Suspect]
     Indication: PLASMA CELL MYELOMA
     Route: 048
     Dates: start: 200812
  2. REVLIMID [Suspect]
     Route: 048
     Dates: start: 200909, end: 201009
  3. REVLIMID [Suspect]
     Route: 048
     Dates: start: 201103, end: 201208
  4. DEXAMETHASONE [Concomitant]
     Indication: PLASMA CELL MYELOMA
     Route: 065
     Dates: start: 200909, end: 201009
  5. DEXAMETHASONE [Concomitant]
     Route: 065
     Dates: start: 201103, end: 201208
  6. CYCLOPHOSPHAMIDE [Concomitant]
     Indication: PLASMA CELL MYELOMA
     Route: 065
     Dates: start: 201103, end: 201208

REACTIONS (3)
  - Pancytopenia [Fatal]
  - Disease progression [Fatal]
  - Neuralgia [Not Recovered/Not Resolved]
